FAERS Safety Report 4424104-2 (Version None)
Quarter: 2004Q3

REPORT INFORMATION
  Report Type: 
  Country: None (occurrence: None)
  Receive Date: 20040809
  Receipt Date: 20040729
  Transmission Date: 20050211
  Serious: Yes (Life-Threatening)
  Sender: FDA-Public Use
  Company Number: 2004-07-1748

PATIENT
  Age: 46 Year
  Sex: Male
  Weight: 88 kg

DRUGS (2)
  1. TRILAFON [Suspect]
     Indication: MOOD SWINGS
     Dosage: 12 MG
     Dates: start: 19960101
  2. LITAREX [Suspect]
     Indication: MOOD SWINGS
     Dosage: 36 MMOL
     Dates: start: 19960101

REACTIONS (4)
  - APNOEA [None]
  - DRY MOUTH [None]
  - DYSPNOEA [None]
  - SUFFOCATION FEELING [None]
